FAERS Safety Report 4330909-9 (Version None)
Quarter: 2004Q1

REPORT INFORMATION
  Report Type: 
  Country: None (occurrence: None)
  Receive Date: 20040331
  Receipt Date: 20040316
  Transmission Date: 20041129
  Serious: Yes (Other)
  Sender: FDA-Public Use
  Company Number: USA021123899

PATIENT
  Age: 80 Year
  Sex: Female
  Weight: 52 kg

DRUGS (12)
  1. EVISTA [Suspect]
     Dosage: 60 MG/DAY
     Dates: start: 20021001, end: 20030428
  2. FORTEO [Suspect]
     Indication: COMPRESSION FRACTURE
     Dosage: 20 UG/DAY
     Dates: start: 20030428
  3. FORTEO [Suspect]
     Indication: OSTEOPOROSIS
     Dosage: 20 UG/DAY
     Dates: start: 20030428
  4. COUMADIN [Concomitant]
  5. TOPROL-XL [Concomitant]
  6. LESCOL [Concomitant]
  7. NEXIUM [Concomitant]
  8. INFLUENZA VACCINE [Concomitant]
  9. ASPIRIN [Concomitant]
  10. PRILOSEC [Concomitant]
  11. UNIVASC [Concomitant]
  12. XALATAN [Concomitant]

REACTIONS (34)
  - ACCIDENTAL NEEDLE STICK [None]
  - ANAEMIA [None]
  - ANXIETY [None]
  - ARTHRALGIA [None]
  - ASTHMA [None]
  - BACK PAIN [None]
  - BRONCHITIS [None]
  - CHILLS [None]
  - CONTUSION [None]
  - DIZZINESS [None]
  - DYSPEPSIA [None]
  - FEELING ABNORMAL [None]
  - HAND FRACTURE [None]
  - HEADACHE [None]
  - INJECTION SITE ERYTHEMA [None]
  - INJECTION SITE HAEMORRHAGE [None]
  - MEDICATION ERROR [None]
  - MYALGIA [None]
  - NECK PAIN [None]
  - OSTEOPOROSIS [None]
  - PAIN IN EXTREMITY [None]
  - PHARMACEUTICAL PRODUCT COMPLAINT [None]
  - RASH [None]
  - RHINITIS [None]
  - THROAT IRRITATION [None]
  - URINARY TRACT DISORDER [None]
  - URINARY TRACT INFECTION [None]
  - VACCINATION COMPLICATION [None]
  - VAGINAL ERYTHEMA [None]
  - VIRAL INFECTION [None]
  - VISION BLURRED [None]
  - VISUAL DISTURBANCE [None]
  - VULVOVAGINAL DISCOMFORT [None]
  - WHITE BLOOD CELL COUNT DECREASED [None]
